FAERS Safety Report 18972876 (Version 1)
Quarter: 2021Q1

REPORT INFORMATION
  Report Type: Spontaneous
  Country: US (occurrence: US)
  Receive Date: 20210305
  Receipt Date: 20210305
  Transmission Date: 20210420
  Serious: No
  Sender: FDA-Public Use
  Company Number: None

PATIENT
  Age: 32 Year
  Sex: Male
  Weight: 82.1 kg

DRUGS (2)
  1. SUBOXONE [Suspect]
     Active Substance: BUPRENORPHINE HYDROCHLORIDE\NALOXONE HYDROCHLORIDE
     Indication: DRUG DEPENDENCE
     Dosage: ?          OTHER DOSE:2.5 TABLETS;?
     Route: 060
     Dates: start: 20200625
  2. SUBOXONE [Suspect]
     Active Substance: BUPRENORPHINE HYDROCHLORIDE\NALOXONE HYDROCHLORIDE
     Indication: DRUG DEPENDENCE
     Dosage: ?          OTHER DOSE:2 FILMS;?
     Route: 060
     Dates: start: 20200604, end: 20200611

REACTIONS (2)
  - Oral mucosal blistering [None]
  - Dyspnoea [None]

NARRATIVE: CASE EVENT DATE: 20210304
